FAERS Safety Report 24623623 (Version 2)
Quarter: 2025Q3

REPORT INFORMATION
  Report Type: Spontaneous
  Country: EU (occurrence: EU)
  Receive Date: 20241115
  Receipt Date: 20250803
  Transmission Date: 20251020
  Serious: Yes (Other)
  Sender: ALEXION PHARMACEUTICALS
  Company Number: EU-ASTRAZENECA-202410GLO011893AT

PATIENT
  Age: 66 Year
  Sex: Female
  Weight: 170 kg

DRUGS (65)
  1. FASLODEX [Suspect]
     Active Substance: FULVESTRANT
     Indication: Breast cancer
     Dates: start: 20171002, end: 20171115
  2. FASLODEX [Suspect]
     Active Substance: FULVESTRANT
  3. LORAZEPAM [Concomitant]
     Active Substance: LORAZEPAM
  4. DROPERIDOL [Concomitant]
     Active Substance: DROPERIDOL
  5. KADCYLA [Suspect]
     Active Substance: ADO-TRASTUZUMAB EMTANSINE
     Indication: Breast cancer metastatic
     Dosage: 270 MILLIGRAM, Q3W
     Dates: start: 20190306, end: 20190919
  6. TAXOTERE [Suspect]
     Active Substance: DOCETAXEL
     Indication: Breast cancer metastatic
     Route: 065
  7. POLYETHYLENE GLYCOL 3350\POTASSIUM CHLORIDE\SODIUM BICARBONATE\SODIUM [Concomitant]
     Active Substance: POLYETHYLENE GLYCOL 3350\POTASSIUM CHLORIDE\SODIUM BICARBONATE\SODIUM CHLORIDE
  8. DOXIL [Suspect]
     Active Substance: DOXORUBICIN HYDROCHLORIDE
     Indication: Breast cancer metastatic
     Dosage: 104.4 MILLIGRAM, QD
     Dates: start: 20210608, end: 20210608
  9. BETAMETHASONE DIPROPIONATE [Concomitant]
     Active Substance: BETAMETHASONE DIPROPIONATE
  10. ZOFRAN [Concomitant]
     Active Substance: ONDANSETRON HYDROCHLORIDE
  11. PREGABALIN [Concomitant]
     Active Substance: PREGABALIN
  12. NAVELBINE [Suspect]
     Active Substance: VINORELBINE TARTRATE
     Indication: Breast cancer metastatic
     Dosage: 45 MILLIGRAM, QW
     Dates: start: 20220422
  13. Paspertin [Concomitant]
  14. LEVOFLOXACIN [Concomitant]
     Active Substance: LEVOFLOXACIN
  15. TRASTUZUMAB [Suspect]
     Active Substance: TRASTUZUMAB
     Indication: HER2 positive breast cancer
  16. TRASTUZUMAB [Suspect]
     Active Substance: TRASTUZUMAB
     Indication: Breast cancer metastatic
  17. ACETAMINOPHEN [Suspect]
     Active Substance: ACETAMINOPHEN
     Route: 065
  18. LIDOCAINE [Concomitant]
     Active Substance: LIDOCAINE
  19. SALINE [Concomitant]
     Active Substance: SODIUM CHLORIDE
  20. XGEVA [Concomitant]
     Active Substance: DENOSUMAB
  21. CAPECITABINE [Suspect]
     Active Substance: CAPECITABINE
     Indication: Breast cancer
     Dosage: 300 MILLIGRAM, QD
     Dates: end: 20200108
  22. Paracodin [Concomitant]
  23. Ponveridol [Concomitant]
  24. POTASSIUM CHLORIDE [Concomitant]
     Active Substance: POTASSIUM CHLORIDE
  25. TRASTUZUMAB DERUXTECAN [Suspect]
     Active Substance: TRASTUZUMAB DERUXTECAN
     Indication: Breast cancer metastatic
     Dates: start: 20200814, end: 20201015
  26. LOVENOX [Concomitant]
     Active Substance: ENOXAPARIN SODIUM
  27. FUROSEMIDE [Concomitant]
     Active Substance: FUROSEMIDE
  28. Neriforte [Concomitant]
  29. PERTUZUMAB [Concomitant]
     Active Substance: PERTUZUMAB
  30. Kalioral [Concomitant]
  31. Novalgin [Concomitant]
  32. TAZOBACTAM [Concomitant]
     Active Substance: TAZOBACTAM
  33. BETAISODONA [Concomitant]
     Active Substance: POVIDONE-IODINE
  34. SILICON [Concomitant]
     Active Substance: SILICON
  35. ONDANSETRON [Concomitant]
     Active Substance: ONDANSETRON
  36. ALPRAZOLAM [Concomitant]
     Active Substance: ALPRAZOLAM
  37. FENTANYL [Concomitant]
     Active Substance: FENTANYL
  38. DEXAMETHASONE [Concomitant]
     Active Substance: DEXAMETHASONE
  39. CALCIUM CARBONATE\CHOLECALCIFEROL [Concomitant]
     Active Substance: CALCIUM CARBONATE\CHOLECALCIFEROL
  40. Elomel [Concomitant]
  41. HYDROMORPHONE HYDROCHLORIDE [Concomitant]
     Active Substance: HYDROMORPHONE HYDROCHLORIDE
  42. EDOXABAN TOSYLATE [Concomitant]
     Active Substance: EDOXABAN TOSYLATE
  43. BUTYLSCOPOLAMINE BROMIDE [Concomitant]
     Active Substance: BUTYLSCOPOLAMINE BROMIDE
  44. OLIVE OIL [Concomitant]
     Active Substance: OLIVE OIL
  45. EUTHYROX [Concomitant]
     Active Substance: LEVOTHYROXINE SODIUM
  46. Oleovit [Concomitant]
  47. PANTOPRAZOLE SODIUM [Concomitant]
     Active Substance: PANTOPRAZOLE SODIUM
  48. AMOXICILLIN [Concomitant]
     Active Substance: AMOXICILLIN
  49. Leukichtan [Concomitant]
  50. TRAZODONE HYDROCHLORIDE [Concomitant]
     Active Substance: TRAZODONE HYDROCHLORIDE
  51. Oleovit [Concomitant]
  52. DRONABINOL [Concomitant]
     Active Substance: DRONABINOL
  53. Halset [Concomitant]
  54. Scottopect [Concomitant]
  55. LORAZEPAM [Concomitant]
     Active Substance: LORAZEPAM
  56. TUCATINIB [Suspect]
     Active Substance: TUCATINIB
     Indication: Breast cancer metastatic
     Route: 065
  57. LACTULOSE [Concomitant]
     Active Substance: LACTULOSE
  58. LOVENOX [Concomitant]
     Active Substance: ENOXAPARIN SODIUM
  59. CARBOXYMETHYLCELLULOSE SODIUM [Suspect]
     Active Substance: CARBOXYMETHYLCELLULOSE SODIUM
  60. VITAMIN C [Concomitant]
     Active Substance: ASCORBIC ACID
  61. TYKERB [Suspect]
     Active Substance: LAPATINIB DITOSYLATE
     Indication: Breast cancer
     Dosage: 100 MILLIGRAM, QD
     Dates: start: 20200108, end: 20200421
  62. PANTOPRAZOLE [Concomitant]
     Active Substance: PANTOPRAZOLE
  63. Motrim [Concomitant]
  64. MORPHINE [Concomitant]
     Active Substance: MORPHINE
  65. DENOSUMAB [Suspect]
     Active Substance: DENOSUMAB
     Indication: Breast cancer metastatic
     Dosage: 120 MILLIGRAM, Q4W
     Dates: start: 20201230, end: 20210210

REACTIONS (16)
  - Sepsis [Recovered/Resolved]
  - Nausea [Recovered/Resolved]
  - Candida infection [Recovered/Resolved]
  - Fatigue [Not Recovered/Not Resolved]
  - Vascular device infection [Recovered/Resolved]
  - Intentional product use issue [Unknown]
  - Streptococcal sepsis [Recovered/Resolved]
  - Varicose vein [Not Recovered/Not Resolved]
  - Pleural effusion [Recovered/Resolved]
  - Vomiting [Recovered/Resolved]
  - Pseudomonal sepsis [Recovered/Resolved]
  - C-reactive protein increased [Not Recovered/Not Resolved]
  - Intentional product use issue [Unknown]
  - Brain oedema [Not Recovered/Not Resolved]
  - Back pain [Recovered/Resolved]
  - Metastases to lymph nodes [Not Recovered/Not Resolved]

NARRATIVE: CASE EVENT DATE: 20200415
